FAERS Safety Report 11237212 (Version 2)
Quarter: 2016Q1

REPORT INFORMATION
  Report Type: Report from Study
  Country: US (occurrence: US)
  Receive Date: 20150703
  Receipt Date: 20160315
  Transmission Date: 20160525
  Serious: No
  Sender: FDA-Public Use
  Company Number: US-AMGEN-USASL2015065224

PATIENT
  Age: 65 Year
  Sex: Female

DRUGS (1)
  1. ENBREL [Suspect]
     Active Substance: ETANERCEPT
     Indication: RHEUMATOID ARTHRITIS
     Dosage: 50 MG, QWK
     Route: 065
     Dates: start: 20150107, end: 20150611

REACTIONS (4)
  - Inflammation [Unknown]
  - Urinary tract infection [Unknown]
  - Drug effect incomplete [Unknown]
  - Ear infection [Unknown]

NARRATIVE: CASE EVENT DATE: 201506
